FAERS Safety Report 7586893-8 (Version None)
Quarter: 2011Q3

REPORT INFORMATION
  Report Type: 
  Country: None (occurrence: None)
  Receive Date: 20110701
  Receipt Date: 20110623
  Transmission Date: 20111222
  Serious: Yes (Hospitalization)
  Sender: FDA-Public Use
  Company Number: GB-SANOFI-AVENTIS-2011SA040582

PATIENT
  Age: 57 Year

DRUGS (3)
  1. FLUOROURACIL [Suspect]
     Route: 065
     Dates: start: 20101116
  2. OXALIPLATIN [Suspect]
     Route: 065
     Dates: start: 20101116
  3. BEVACIZUMAB [Suspect]
     Route: 065
     Dates: start: 20101116

REACTIONS (1)
  - SUPERIOR VENA CAVA SYNDROME [None]
